FAERS Safety Report 7875197-1 (Version None)
Quarter: 2011Q4

REPORT INFORMATION
  Report Type: 
  Country: None (occurrence: None)
  Receive Date: 20111031
  Receipt Date: 20111021
  Transmission Date: 20120403
  Serious: Yes (Other)
  Sender: FDA-Public Use
  Company Number: TH-ASTELLAS-2011JP007605

PATIENT
  Age: 20 Year
  Sex: Female

DRUGS (5)
  1. METHOTREXATE [Concomitant]
     Indication: PROPHYLAXIS AGAINST GRAFT VERSUS HOST DISEASE
     Route: 065
  2. CYTARABINE [Concomitant]
     Route: 065
  3. FLUCONAZOLE [Suspect]
     Indication: PROPHYLAXIS AGAINST GRAFT VERSUS HOST DISEASE
     Route: 065
  4. ANTI-THYMOCYTE GLOBULIN NOS [Concomitant]
     Route: 065
  5. CYCLOPHOSPHAMIDE [Concomitant]
     Route: 065

REACTIONS (2)
  - DRUG INEFFECTIVE [None]
  - GRAFT VERSUS HOST DISEASE [None]
